FAERS Safety Report 9305132 (Version 3)
Quarter: 2014Q2

REPORT INFORMATION
  Report Type: Spontaneous
  Country: CN (occurrence: CN)
  Receive Date: 20130523
  Receipt Date: 20140514
  Transmission Date: 20141212
  Serious: Yes (Hospitalization)
  Sender: FDA-Public Use
  Company Number: PHHY2013CN049721

PATIENT
  Age: 34 Year
  Sex: Female

DRUGS (1)
  1. SEBIVO [Suspect]
     Indication: CHRONIC HEPATITIS B
     Dosage: 600 MG, QD FROM (3 TO 4 YEARS)
     Route: 048

REACTIONS (3)
  - Premature delivery [Unknown]
  - Premature labour [Unknown]
  - Maternal exposure during pregnancy [Unknown]
